FAERS Safety Report 6064106-6 (Version None)
Quarter: 2009Q1

REPORT INFORMATION
  Report Type: 
  Country: None (occurrence: None)
  Receive Date: 20090203
  Receipt Date: 20090203
  Transmission Date: 20090719
  Serious: No
  Sender: FDA-Public Use
  Company Number: None

PATIENT
  Sex: Male
  Weight: 114.76 kg

DRUGS (1)
  1. DEPAKOTE ER [Suspect]

REACTIONS (1)
  - HYPERAMMONAEMIA [None]
